FAERS Safety Report 4406664-0 (Version None)
Quarter: 2004Q3

REPORT INFORMATION
  Report Type: 
  Country: None (occurrence: None)
  Receive Date: 20040715
  Receipt Date: 20040706
  Transmission Date: 20050211
  Serious: Yes (Other)
  Sender: FDA-Public Use
  Company Number: 2004222708NL

PATIENT
  Age: 73 Year
  Sex: Female
  Weight: 74 kg

DRUGS (4)
  1. GENOTROPIN [Suspect]
     Indication: HYPOPITUITARISM
     Dosage: 0.1 MG, QD, SUBCUTANEOUS
     Route: 058
     Dates: start: 20010606
  2. LEVOTHYROXINE SODIUM [Concomitant]
  3. HYDROCORTISONE [Concomitant]
  4. LORAMET (LORMETAZEPAM) [Concomitant]

REACTIONS (2)
  - MALIGNANT PITUITARY TUMOUR [None]
  - NEOPLASM RECURRENCE [None]
